FAERS Safety Report 4355392-9 (Version None)
Quarter: 2004Q2

REPORT INFORMATION
  Report Type: 
  Country: None (occurrence: None)
  Receive Date: 20040504
  Receipt Date: 20040419
  Transmission Date: 20050107
  Serious: Yes (Other)
  Sender: FDA-Public Use
  Company Number: A0507808A

PATIENT
  Age: 25 Year
  Sex: Female
  Weight: 59.8748 kg

DRUGS (1)
  1. COMMIT [Suspect]
     Indication: EX-SMOKER
     Dosage: 4 MG / THREE TIMES PER DAY / TRANS
     Dates: start: 20040411, end: 20040413

REACTIONS (12)
  - DIARRHOEA [None]
  - DRUG HYPERSENSITIVITY [None]
  - DYSGEUSIA [None]
  - DYSPNOEA [None]
  - NAUSEA [None]
  - ORAL DISCOMFORT [None]
  - PHARYNGOLARYNGEAL PAIN [None]
  - SWOLLEN TONGUE [None]
  - THROAT TIGHTNESS [None]
  - TONGUE COATED [None]
  - TONGUE HAEMORRHAGE [None]
  - VOMITING [None]
